FAERS Safety Report 9999658 (Version 2)
Quarter: 2014Q1

REPORT INFORMATION
  Report Type: Spontaneous
  Country: US (occurrence: US)
  Receive Date: 20140312
  Receipt Date: 20140312
  Transmission Date: 20141002
  Serious: Yes (Other)
  Sender: FDA-Public Use
  Company Number: US-UCBSA-098604

PATIENT
  Age: 45 Year
  Sex: Female
  Weight: 122.46 kg

DRUGS (17)
  1. VIMPAT [Suspect]
     Indication: CONVULSION
     Dosage: DOSAGE STRENGTH: 50MG
     Dates: start: 20130830, end: 20130902
  2. KEPPRA XR [Suspect]
     Indication: CONVULSION
     Dosage: DOSAGE STRENGTH:750 MG; 2 TABLETS ONCE DAILY
     Dates: start: 201109
  3. VICODIN [Suspect]
  4. BACLOFEN [Suspect]
  5. TRILEPTAL [Suspect]
  6. LAMICTAL [Suspect]
  7. GABAPENTIN [Suspect]
  8. TIZANIDINE [Suspect]
  9. VITAMIN D [Concomitant]
     Indication: MULTIPLE SCLEROSIS
     Dosage: 2 PILLS OF 2000 IU PER DAY (9 - 11 AM)
  10. PRENATAL VITAMIN [Concomitant]
     Indication: SUPPLEMENTATION THERAPY
     Dosage: 1 PILL PER DAY (9 - 11 AM)
  11. CALCIUM [Concomitant]
     Indication: SUPPLEMENTATION THERAPY
     Dosage: 1 PILL PER DAY (9 - 11 AM)
  12. MAGNESIUM [Concomitant]
     Indication: SUPPLEMENTATION THERAPY
     Dosage: 1 PILL PER DAY (9 - 11 AM)
  13. ZINC [Concomitant]
     Indication: SUPPLEMENTATION THERAPY
     Dosage: 1 PILL PER DAY (9-11 AM)
  14. SENNA [Concomitant]
     Indication: CONSTIPATION
     Dosage: 2 PILLS 2 TIMES PER DAY (9-11 AM AND 10 PM MIDNIGHT)
  15. SENNA [Concomitant]
     Indication: SUPPLEMENTATION THERAPY
     Dosage: 2 PILLS 2 TIMES PER DAY (9-11 AM AND 10 PM MIDNIGHT)
  16. OXYCODONE [Concomitant]
  17. TEGRETOL [Concomitant]

REACTIONS (21)
  - Major depression [Recovered/Resolved]
  - Multiple sclerosis [Unknown]
  - Homicidal ideation [Unknown]
  - Suicidal ideation [Unknown]
  - Headache [Recovered/Resolved]
  - Confusional state [Recovered/Resolved]
  - Memory impairment [Recovered/Resolved]
  - Clumsiness [Recovered/Resolved]
  - Diarrhoea [Recovered/Resolved]
  - Anger [Recovered/Resolved]
  - Drug ineffective [Unknown]
  - Constipation [Unknown]
  - Irritability [Unknown]
  - Dysarthria [Unknown]
  - Photophobia [Unknown]
  - Balance disorder [Unknown]
  - Neuralgia [Unknown]
  - Weight increased [Not Recovered/Not Resolved]
  - Fatigue [Unknown]
  - Dizziness [Unknown]
  - Overdose [Recovered/Resolved]
